FAERS Safety Report 18149498 (Version 1)
Quarter: 2020Q3

REPORT INFORMATION
  Report Type: Spontaneous
  Country: AF (occurrence: AF)
  Receive Date: 20200813
  Receipt Date: 20200813
  Transmission Date: 20201103
  Serious: Yes (Death)
  Sender: FDA-Public Use
  Company Number: None

PATIENT
  Age: 51 Year
  Sex: Male
  Weight: 79.1 kg

DRUGS (15)
  1. AZITHROMYCIN 500 MG IV ONCE DAILY [Concomitant]
     Dates: start: 20200709, end: 20200713
  2. ENOXAPARIN 80 MG SQ ONCE DAILY [Concomitant]
     Dates: start: 20200722, end: 20200803
  3. MICAFUNGIN 100 MG IV ONCE DAILY [Concomitant]
     Dates: start: 20200722, end: 20200728
  4. ZINC SULFATE 220 MG PO ONCE DAILY [Concomitant]
     Dates: start: 20200710, end: 20200714
  5. ENOXAPARIN 80 MG SQ Q12HR [Concomitant]
     Dates: start: 20200709, end: 20200721
  6. ENOXAPARIN 40 MG SQ Q12HR [Concomitant]
     Dates: start: 20200804, end: 20200807
  7. TPN CUSTOM [Concomitant]
     Dates: start: 20200801, end: 20200807
  8. DEXAMETHASONE 6 MG IV ONCE DAILY [Concomitant]
     Dates: start: 20200725, end: 20200729
  9. COLCHICINE 0.6 MG PO BID [Concomitant]
     Dates: start: 20200725, end: 20200801
  10. CEFEPIME 1 GM IV Q6HR [Concomitant]
     Dates: start: 20200709, end: 20200717
  11. CEFEPIME 1 GM IV Q6HR [Concomitant]
     Dates: start: 20200723, end: 20200807
  12. PANTOPRAZOLE DRIP [Concomitant]
     Dates: start: 20200709, end: 20200712
  13. REMDESIVIR. [Suspect]
     Active Substance: REMDESIVIR
     Indication: COVID-19 PNEUMONIA
     Route: 042
     Dates: start: 20200709, end: 20200714
  14. DEXAMETHASONE 6 MG IV ONCE DAILY [Concomitant]
     Dates: start: 20200709, end: 20200718
  15. PANTOPRAZOLE 40 MG IV Q12HRS [Concomitant]
     Dates: start: 20200712, end: 20200807

REACTIONS (9)
  - Thrombocytopenia [None]
  - Blood glucose increased [None]
  - Hyponatraemia [None]
  - Acute respiratory failure [None]
  - Acute kidney injury [None]
  - Gastrointestinal haemorrhage [None]
  - Leukocytosis [None]
  - Refusal of treatment by patient [None]
  - Pneumothorax [None]

NARRATIVE: CASE EVENT DATE: 20200807
